FAERS Safety Report 5871086-2 (Version None)
Quarter: 2008Q3

REPORT INFORMATION
  Report Type: 
  Country: None (occurrence: None)
  Receive Date: 20080904
  Receipt Date: 20080825
  Transmission Date: 20090109
  Serious: Yes (Other)
  Sender: FDA-Public Use
  Company Number: US-PFIZER INC-2008058641

PATIENT
  Sex: Male

DRUGS (3)
  1. XALATAN [Suspect]
     Indication: INTRAOCULAR PRESSURE INCREASED
  2. PREDNISONE [Suspect]
     Indication: EMPHYSEMA
  3. ALPHAGAN [Suspect]
     Indication: INTRAOCULAR PRESSURE INCREASED

REACTIONS (20)
  - ANGIOPATHY [None]
  - ARTERIOSCLEROSIS [None]
  - ASTIGMATISM [None]
  - CATARACT [None]
  - DYSPNOEA [None]
  - EYE DISORDER [None]
  - GAIT DISTURBANCE [None]
  - GENERAL PHYSICAL HEALTH DETERIORATION [None]
  - HYPERMETROPIA [None]
  - HYPERTENSION [None]
  - LUNG INFECTION [None]
  - MACULOPATHY [None]
  - MYOPIA [None]
  - OCULAR DISCOMFORT [None]
  - OCULAR VASCULAR DISORDER [None]
  - OEDEMA [None]
  - PRESBYOPIA [None]
  - PSEUDOPHAKIA [None]
  - RETINAL VEIN OCCLUSION [None]
  - VISUAL ACUITY REDUCED [None]
